FAERS Safety Report 8186106-2 (Version None)
Quarter: 2012Q1

REPORT INFORMATION
  Report Type: 
  Country: None (occurrence: None)
  Receive Date: 20120306
  Receipt Date: 20120223
  Transmission Date: 20120608
  Serious: Yes (Other)
  Sender: FDA-Public Use
  Company Number: US-JNJCP-30000092492

PATIENT
  Age: 14 Year
  Sex: Female
  Weight: 52 kg

DRUGS (4)
  1. NTG SKIN ID ANTI ACNE TREATMENT USA NTSIAAUS [Suspect]
     Indication: ACNE
     Dosage: A NICKEL SIZE AMOUNT,ONCE
     Route: 061
     Dates: start: 20120216, end: 20120216
  2. UNSPECIFIED STEROID [Suspect]
  3. NTG SKIN ID FOAM CLEANSER USA NTSIFCUS [Suspect]
     Indication: ACNE
     Dosage: A NICKEL SIZE AMOUNT, ONCE
     Route: 061
     Dates: start: 20120216, end: 20120216
  4. NTG SKIN ID (72) HYDRATOR USA NTSIHYUS [Suspect]
     Indication: ACNE
     Dosage: A NICKEL SIZE AMOUNT, ONCE
     Route: 061
     Dates: start: 20120216, end: 20120216

REACTIONS (5)
  - SYNCOPE [None]
  - PYREXIA [None]
  - APPLICATION SITE ERYTHEMA [None]
  - APPLICATION SITE SWELLING [None]
  - APPLICATION SITE PAPULES [None]
